FAERS Safety Report 23752373 (Version 1)
Quarter: 2024Q2

REPORT INFORMATION
  Report Type: Spontaneous
  Country: CN (occurrence: CN)
  Receive Date: 20240417
  Receipt Date: 20240417
  Transmission Date: 20240716
  Serious: Yes (Hospitalization, Other)
  Sender: FDA-Public Use
  Company Number: CN-009507513-2404CHN007525

PATIENT
  Age: 71 Year
  Sex: Male
  Weight: 41 kg

DRUGS (1)
  1. CANCIDAS [Suspect]
     Active Substance: CASPOFUNGIN ACETATE
     Indication: Anti-infective therapy
     Dosage: 50MG QD
     Route: 041
     Dates: start: 20240406, end: 20240407

REACTIONS (3)
  - Hepatic failure [Unknown]
  - Disseminated intravascular coagulation [Unknown]
  - Blood creatinine increased [Unknown]

NARRATIVE: CASE EVENT DATE: 20240407
